FAERS Safety Report 14665494 (Version 1)
Quarter: 2018Q1

REPORT INFORMATION
  Report Type: Spontaneous
  Country: CA (occurrence: CA)
  Receive Date: 20180321
  Receipt Date: 20180321
  Transmission Date: 20180509
  Serious: Yes (Other)
  Sender: FDA-Public Use
  Company Number: CA-BAYER-2018-051374

PATIENT
  Age: 49 Year
  Sex: Female
  Weight: 110 kg

DRUGS (2)
  1. MIRENA [Suspect]
     Active Substance: LEVONORGESTREL
     Indication: MENORRHAGIA
     Dosage: 20 MCG/24HR, CONT
     Route: 015
  2. MIRENA [Suspect]
     Active Substance: LEVONORGESTREL
     Indication: MENORRHAGIA

REACTIONS (10)
  - Tachycardia [Unknown]
  - Breast cyst [Unknown]
  - Depression [Unknown]
  - Menorrhagia [Unknown]
  - Abdominal pain lower [Unknown]
  - Metrorrhagia [Unknown]
  - Acne [Unknown]
  - Blood pressure increased [Unknown]
  - Fatigue [Unknown]
  - Loss of libido [Unknown]
